FAERS Safety Report 9880865 (Version 3)
Quarter: 2014Q2

REPORT INFORMATION
  Report Type: Spontaneous
  Country: US (occurrence: US)
  Receive Date: 20140207
  Receipt Date: 20140403
  Transmission Date: 20141212
  Serious: No
  Sender: FDA-Public Use
  Company Number: US-PFIZER INC-2014034844

PATIENT
  Age: 58 Year
  Sex: Female
  Weight: 58.96 kg

DRUGS (1)
  1. LYRICA [Suspect]
     Dosage: 150 MG, 2X/DAY (1 CAP PO)
     Route: 048

REACTIONS (2)
  - Pain [Unknown]
  - Drug withdrawal syndrome [Unknown]
